FAERS Safety Report 16088256 (Version 1)
Quarter: 2019Q2

REPORT INFORMATION
  Report Type: Spontaneous
  Country: US (occurrence: US)
  Receive Date: 20190318
  Receipt Date: 20190318
  Transmission Date: 20190711
  Serious: Yes (Other)
  Sender: FDA-Public Use
  Company Number: None

PATIENT
  Age: 56 Year
  Sex: Female
  Weight: 114.75 kg

DRUGS (1)
  1. LOSARTAN POTASSIUM / 50 MG [Suspect]
     Active Substance: LOSARTAN POTASSIUM
     Indication: HYPERTENSION
     Dosage: ?          QUANTITY:30 TABLET(S);?
     Route: 048
     Dates: start: 20180301, end: 20190315

REACTIONS (6)
  - Suspected product contamination [None]
  - Anxiety [None]
  - Palpitations [None]
  - Sleep disorder [None]
  - Product quality issue [None]
  - Dry mouth [None]

NARRATIVE: CASE EVENT DATE: 20180301
